FAERS Safety Report 18581103 (Version 3)
Quarter: 2021Q3

REPORT INFORMATION
  Report Type: Report from Study
  Country: BR (occurrence: BR)
  Receive Date: 20201204
  Receipt Date: 20210804
  Transmission Date: 20211014
  Serious: Yes (Death, Hospitalization, Disabling)
  Sender: FDA-Public Use
  Company Number: NVSC2020BR322686

PATIENT
  Age: 64 Year
  Sex: Female
  Weight: 39 kg

DRUGS (9)
  1. HUMALOG [Concomitant]
     Active Substance: INSULIN LISPRO
     Indication: DIABETES MELLITUS
     Dosage: 8 UI, UNK
     Route: 065
     Dates: start: 20190416
  2. IMOSEC [Concomitant]
     Active Substance: LOPERAMIDE
     Indication: DIARRHOEA
     Dosage: 2 MG
     Route: 065
     Dates: start: 20190315
  3. LETROZOLE. [Suspect]
     Active Substance: LETROZOLE
     Indication: BREAST CANCER METASTATIC
     Dosage: 2.5 MG, QD
     Route: 048
     Dates: start: 20151229, end: 20201126
  4. TYKERB [Suspect]
     Active Substance: LAPATINIB DITOSYLATE
     Indication: BREAST CANCER METASTATIC
     Dosage: 750 MG, QD
     Route: 048
     Dates: start: 20151229, end: 20201116
  5. DIPYRONE [Concomitant]
     Active Substance: DIPYRONE
     Indication: ARTHRALGIA
     Dosage: 500 MG
     Route: 065
     Dates: start: 20181018
  6. ACETYLSALICYLIC ACID [Concomitant]
     Active Substance: ASPIRIN
     Indication: ISCHAEMIC STROKE
     Dosage: 100 MG
     Route: 065
     Dates: start: 20200317
  7. BASAGLAR [Concomitant]
     Active Substance: INSULIN GLARGINE
     Indication: DIABETES MELLITUS
     Dosage: 22 UI, UNK
     Route: 065
     Dates: start: 20190416
  8. LEVOTHYROXINE. [Concomitant]
     Active Substance: LEVOTHYROXINE
     Indication: HYPOTHYROIDISM
     Dosage: 88 MG
     Route: 065
     Dates: start: 20170530
  9. TRASTUZUMAB. [Suspect]
     Active Substance: TRASTUZUMAB
     Indication: BREAST CANCER METASTATIC
     Dosage: 234 MG
     Route: 042
     Dates: start: 20151229, end: 20201028

REACTIONS (2)
  - Pulmonary sepsis [Fatal]
  - Abdominal sepsis [Fatal]

NARRATIVE: CASE EVENT DATE: 20201127
